FAERS Safety Report 6269511-0 (Version None)
Quarter: 2009Q3

REPORT INFORMATION
  Report Type: 
  Country: None (occurrence: None)
  Receive Date: 20090715
  Receipt Date: 20081205
  Transmission Date: 20100115
  Serious: No
  Sender: FDA-Public Use
  Company Number: US-TYCO HEALTHCARE/MALLINCKRODT-T200802135

PATIENT

DRUGS (4)
  1. OXYCODONE HCL [Suspect]
     Indication: PAIN
     Dosage: 30 MG, UNK
     Dates: start: 20070101
  2. METHADONE HCL [Suspect]
     Indication: PAIN
     Dosage: 45 MG, UNK
     Dates: start: 20081001
  3. METHADONE HCL [Suspect]
  4. METHADONE HCL [Concomitant]
     Dosage: 45 MG, UNK

REACTIONS (6)
  - ANXIETY [None]
  - DRUG EFFECT DECREASED [None]
  - FATIGUE [None]
  - FEELING ABNORMAL [None]
  - SEDATION [None]
  - TREMOR [None]
